FAERS Safety Report 9632538 (Version 1)
Quarter: 2013Q4

REPORT INFORMATION
  Report Type: Spontaneous
  Country: US (occurrence: US)
  Receive Date: 20131018
  Receipt Date: 20131018
  Transmission Date: 20140711
  Serious: Yes (Other)
  Sender: FDA-Public Use
  Company Number: US-PURDUE-USA-2013-0107557

PATIENT
  Age: 23 Year
  Sex: Male

DRUGS (3)
  1. OXYCODONE HCL CR TABLETS (SIMILAR TO NDA 22-272) [Suspect]
     Indication: PRODUCT USED FOR UNKNOWN INDICATION
     Dosage: UNK, SEE TEXT
  2. ALPRAZOLAM [Suspect]
     Indication: PRODUCT USED FOR UNKNOWN INDICATION
     Dosage: UNK, SEE TEXT
  3. MARIJUANA [Suspect]
     Indication: PRODUCT USED FOR UNKNOWN INDICATION
     Dosage: UNK, SEE TEXT

REACTIONS (4)
  - Substance abuse [Unknown]
  - Homicide [Unknown]
  - Road traffic accident [Unknown]
  - Impaired driving ability [Unknown]
